FAERS Safety Report 24305324 (Version 1)
Quarter: 2024Q3

REPORT INFORMATION
  Report Type: Spontaneous
  Country: GB (occurrence: GB)
  Receive Date: 20240911
  Receipt Date: 20240911
  Transmission Date: 20241016
  Serious: Yes (Hospitalization, Other)
  Sender: AUROBINDO
  Company Number: GB-MHRA-MED-202409051704156240-BYGQC

PATIENT
  Age: 24 Year
  Sex: Female

DRUGS (1)
  1. ERYTHROMYCIN [Suspect]
     Active Substance: ERYTHROMYCIN
     Indication: Tooth infection
     Dosage: 250 MILLIGRAM, FOUR TIMES/DAY (250MG QDS)
     Route: 065
     Dates: start: 20240823

REACTIONS (2)
  - Septic shock [Recovered/Resolved]
  - Maternal exposure during pregnancy [Unknown]

NARRATIVE: CASE EVENT DATE: 20240823
